FAERS Safety Report 19693871 (Version 7)
Quarter: 2022Q2

REPORT INFORMATION
  Report Type: Report from Study
  Country: GB (occurrence: GB)
  Receive Date: 20210812
  Receipt Date: 20220401
  Transmission Date: 20220721
  Serious: Yes (Other)
  Sender: FDA-Public Use
  Company Number: GB-TAKEDA-2021TUS039494

PATIENT
  Sex: Female

DRUGS (2)
  1. IXAZOMIB [Suspect]
     Active Substance: IXAZOMIB
     Indication: Plasma cell myeloma
     Dosage: 3 MILLIGRAM
     Route: 048
     Dates: start: 20210622
  2. COTRIMOXAZOLE [Concomitant]
     Active Substance: SULFAMETHOXAZOLE\TRIMETHOPRIM
     Dosage: UNK

REACTIONS (21)
  - Haematochezia [Recovered/Resolved]
  - Neutropenia [Unknown]
  - Muscle strain [Unknown]
  - Feeling abnormal [Recovering/Resolving]
  - Flushing [Recovered/Resolved]
  - Onychoclasis [Unknown]
  - Onychalgia [Unknown]
  - Malaise [Recovered/Resolved]
  - Abdominal pain upper [Unknown]
  - Vitamin D deficiency [Unknown]
  - Monoclonal immunoglobulin present [Unknown]
  - Alopecia [Unknown]
  - Abdominal discomfort [Recovered/Resolved]
  - Fatigue [Unknown]
  - Neutrophil count decreased [Recovered/Resolved]
  - Dizziness [Recovered/Resolved]
  - Rash pruritic [Unknown]
  - Nausea [Recovered/Resolved]
  - Rash [Recovered/Resolved]
  - Diarrhoea [Recovered/Resolved]
  - Product dose omission issue [Unknown]

NARRATIVE: CASE EVENT DATE: 20210622
